FAERS Safety Report 14773108 (Version 1)
Quarter: 2018Q2

REPORT INFORMATION
  Report Type: Spontaneous
  Country: US (occurrence: US)
  Receive Date: 20180418
  Receipt Date: 20180418
  Transmission Date: 20180711
  Serious: No
  Sender: FDA-Public Use
  Company Number: US-TEVA-2018-US-872753

PATIENT
  Age: 83 Year
  Sex: Female

DRUGS (1)
  1. ALENDRONATE SODIUM. [Suspect]
     Active Substance: ALENDRONATE SODIUM
     Indication: BONE DENSITY DECREASED
     Dosage: TAKEN TWO DOSES
     Route: 065
     Dates: start: 20180219

REACTIONS (6)
  - Bone pain [Unknown]
  - Gait disturbance [Unknown]
  - Product use complaint [Unknown]
  - Balance disorder [Unknown]
  - Vertigo [Unknown]
  - Arthralgia [Unknown]

NARRATIVE: CASE EVENT DATE: 201802
